FAERS Safety Report 17289106 (Version 2)
Quarter: 2020Q1

REPORT INFORMATION
  Report Type: Spontaneous
  Country: NL (occurrence: NL)
  Receive Date: 20200120
  Receipt Date: 20200122
  Transmission Date: 20200409
  Serious: Yes (Other)
  Sender: FDA-Public Use
  Company Number: NL-PFIZER INC-2020024783

PATIENT
  Sex: Male

DRUGS (3)
  1. OMEPRAZOL [OMEPRAZOLE] [Suspect]
     Active Substance: OMEPRAZOLE
     Indication: ABDOMINAL PAIN
     Dosage: 20 MILLIGRAM, QD
     Route: 065
     Dates: start: 201911
  2. AVAMYS [Concomitant]
     Active Substance: FLUTICASONE FUROATE
     Dosage: UNK
  3. PANTOZOL [Suspect]
     Active Substance: PANTOPRAZOLE SODIUM
     Indication: ABDOMINAL PAIN
     Dosage: 20 MILLIGRAM, QD
     Route: 065
     Dates: start: 201911

REACTIONS (4)
  - Hyperventilation [Recovered/Resolved]
  - Syncope [Recovered/Resolved]
  - Pallor [Recovered/Resolved]
  - Heart rate increased [Recovered/Resolved]
